FAERS Safety Report 8681417 (Version 3)
Quarter: 2013Q1

REPORT INFORMATION
  Report Type: Spontaneous
  Country: US (occurrence: US)
  Receive Date: 20120725
  Receipt Date: 20130107
  Transmission Date: 20140127
  Serious: No
  Sender: FDA-Public Use
  Company Number: US-PFIZER INC-2012177561

PATIENT
  Age: 55 Year
  Sex: Male

DRUGS (3)
  1. INLYTA [Suspect]
     Indication: RENAL CANCER
     Dosage: 5 MG, 2X/DAY
     Dates: start: 20120627
  2. INLYTA [Suspect]
     Dosage: UNK
  3. A AND D OINTMENT [Concomitant]
     Indication: BACK PAIN

REACTIONS (7)
  - Rhinorrhoea [Unknown]
  - Weight decreased [Unknown]
  - Decreased appetite [Unknown]
  - Dysphonia [Unknown]
  - Frequent bowel movements [Unknown]
  - Disease progression [Unknown]
  - Renal cancer [Unknown]
